FAERS Safety Report 8050505-X (Version None)
Quarter: 2012Q1

REPORT INFORMATION
  Report Type: 
  Country: None (occurrence: None)
  Receive Date: 20120117
  Receipt Date: 20120111
  Transmission Date: 20120608
  Serious: Yes (Hospitalization, Disabling)
  Sender: FDA-Public Use
  Company Number: US-CELGENEUS-163-21880-11064048

PATIENT
  Sex: Female

DRUGS (6)
  1. ATENOLOL [Concomitant]
     Indication: HYPERTENSION
     Dosage: 100 MILLIGRAM
     Route: 065
  2. REVLIMID [Suspect]
     Route: 048
     Dates: start: 20111202
  3. GLUCOPHAGE [Concomitant]
     Route: 065
  4. PROCRIT [Concomitant]
     Dosage: 40K UNITS
     Route: 065
     Dates: start: 20080101
  5. REVLIMID [Suspect]
     Dosage: 15 MILLIGRAM
     Route: 048
     Dates: start: 20110603, end: 20110608
  6. NORVASC [Concomitant]
     Indication: HYPERTENSION
     Dosage: 10 MILLIGRAM
     Route: 065

REACTIONS (2)
  - SKIN ULCER [None]
  - LOCALISED INFECTION [None]
